FAERS Safety Report 7465692-1 (Version None)
Quarter: 2011Q2

REPORT INFORMATION
  Report Type: 
  Country: None (occurrence: None)
  Receive Date: 20110509
  Receipt Date: 20110406
  Transmission Date: 20111010
  Serious: Yes (Hospitalization)
  Sender: FDA-Public Use
  Company Number: B0711018A

PATIENT
  Sex: Female

DRUGS (7)
  1. ALDALIX [Concomitant]
     Dosage: 1UNIT IN THE MORNING
     Route: 048
  2. PARACETAMOL [Concomitant]
     Dosage: 1G THREE TIMES PER DAY
     Route: 048
  3. NEXIUM [Concomitant]
     Dosage: 40MG AT NIGHT
     Route: 048
  4. KARDEGIC [Concomitant]
     Dosage: 75MG PER DAY
     Route: 048
     Dates: start: 20110204, end: 20110309
  5. ARIXTRA [Suspect]
     Dosage: 2.5MG AT NIGHT
     Route: 058
     Dates: start: 20110202, end: 20110309
  6. DIFFU K [Concomitant]
     Dosage: 1UNIT TWICE PER DAY
     Route: 048
  7. ZOLPIDEM [Concomitant]
     Dosage: 10MG AT NIGHT
     Route: 048

REACTIONS (1)
  - TRAUMATIC HAEMATOMA [None]
